FAERS Safety Report 5521106-X (Version None)
Quarter: 2007Q4

REPORT INFORMATION
  Report Type: 
  Country: None (occurrence: None)
  Receive Date: 20071119
  Receipt Date: 20071105
  Transmission Date: 20080405
  Serious: Yes (Hospitalization, Other)
  Sender: FDA-Public Use
  Company Number: GB-BAUSCH-2007BL003999

PATIENT
  Age: 33 Year
  Sex: Female

DRUGS (2)
  1. MINIMS ATROPINE SULPHATE 1% [Suspect]
     Route: 061
     Dates: start: 20071022, end: 20071029
  2. MINIMS ARTIFICIAL TEARS [Concomitant]

REACTIONS (4)
  - DIZZINESS [None]
  - MEDICATION ERROR [None]
  - NAUSEA [None]
  - PALPITATIONS [None]
